FAERS Safety Report 5125895-8 (Version None)
Quarter: 2006Q4

REPORT INFORMATION
  Report Type: 
  Country: None (occurrence: None)
  Receive Date: 20061012
  Receipt Date: 20060929
  Transmission Date: 20070319
  Serious: Yes (Other)
  Sender: FDA-Public Use
  Company Number: NL-GLAXOSMITHKLINE-B0440928A

PATIENT
  Age: 49 Year
  Sex: Female

DRUGS (5)
  1. BUPROPION HCL [Suspect]
     Dates: start: 20001216, end: 20001220
  2. SEROXAT [Concomitant]
     Dosage: 40MG PER DAY
  3. SERETIDE [Concomitant]
     Route: 055
  4. ORGAMETRIL [Concomitant]
     Dosage: 5MG PER DAY
  5. NAPROXEN [Concomitant]
     Dosage: 1000MG PER DAY

REACTIONS (4)
  - DEPRESSION [None]
  - FEAR [None]
  - SUICIDAL IDEATION [None]
  - TREMOR [None]
